FAERS Safety Report 19804090 (Version 1)
Quarter: 2021Q3

REPORT INFORMATION
  Report Type: Spontaneous
  Country: CN (occurrence: CN)
  Receive Date: 20210908
  Receipt Date: 20210908
  Transmission Date: 20211014
  Serious: Yes (Other)
  Sender: FDA-Public Use
  Company Number: CN-PFIZER INC-202101111025

PATIENT
  Age: 71 Year
  Sex: Female
  Weight: 65 kg

DRUGS (4)
  1. BUTYLPHTHALIDE/SODIUM CHLORIDE [Suspect]
     Active Substance: BUTYLPHTHALIDE
     Indication: CEREBRAL INFARCTION
     Dosage: 25 MG, 2X/DAY
     Route: 041
     Dates: start: 20210616, end: 20210628
  2. PARIET [Suspect]
     Active Substance: RABEPRAZOLE SODIUM
     Indication: CEREBRAL INFARCTION
     Dosage: 10 MG, 2X/DAY
     Route: 048
     Dates: start: 20210615, end: 20210629
  3. DALTEPARIN SODIUM [Suspect]
     Active Substance: DALTEPARIN SODIUM
     Indication: VENOUS THROMBOSIS LIMB
     Dosage: 5000 IU, 1X/DAY
     Route: 058
     Dates: start: 20210619, end: 20210629
  4. ROSUVASTATIN CALCIUM. [Suspect]
     Active Substance: ROSUVASTATIN CALCIUM
     Indication: CEREBRAL INFARCTION
     Dosage: 10 MG, 1X/DAY
     Route: 048
     Dates: start: 20210615, end: 20210625

REACTIONS (1)
  - Liver injury [Recovered/Resolved]

NARRATIVE: CASE EVENT DATE: 20210626
